FAERS Safety Report 8191904-5 (Version None)
Quarter: 2012Q1

REPORT INFORMATION
  Report Type: 
  Country: None (occurrence: None)
  Receive Date: 20120307
  Receipt Date: 20120227
  Transmission Date: 20120608
  Serious: Yes (Other)
  Sender: FDA-Public Use
  Company Number: PHHY2012MX017847

PATIENT
  Sex: Female

DRUGS (3)
  1. TEGRETOL [Suspect]
     Route: 048
     Dates: start: 20120101, end: 20120201
  2. TEGRETOL [Suspect]
     Route: 048
     Dates: start: 20110101, end: 20110101
  3. DIPIRONA [Suspect]
     Dosage: UNK
     Dates: start: 20110101, end: 20120101

REACTIONS (4)
  - HEADACHE [None]
  - SOMNOLENCE [None]
  - PROLACTINOMA [None]
  - BREAST DISCHARGE [None]
